FAERS Safety Report 6983466-2 (Version None)
Quarter: 2010Q3

REPORT INFORMATION
  Report Type: 
  Country: None (occurrence: None)
  Receive Date: 20100914
  Receipt Date: 20100914
  Transmission Date: 20110219
  Serious: Yes (Death)
  Sender: FDA-Public Use
  Company Number: None

PATIENT
  Sex: Female
  Weight: 59.6 kg

DRUGS (3)
  1. AZACITIDINE [Suspect]
     Indication: ACUTE MYELOID LEUKAEMIA
     Dosage: AZACITIDINE 75 MG/M2 QD IV
     Route: 042
  2. REVLIMID [Suspect]
     Dosage: REVLEMID 50 MG QD PO
     Route: 048
  3. PLEASE SEE 3 PAGE ATTACHMENT [Concomitant]

REACTIONS (10)
  - BLOOD CULTURE POSITIVE [None]
  - CONSTIPATION [None]
  - CULTURE URINE POSITIVE [None]
  - EPISTAXIS [None]
  - FALL [None]
  - HEADACHE [None]
  - HYPERBILIRUBINAEMIA [None]
  - NAUSEA [None]
  - PLATELET COUNT DECREASED [None]
  - SOMNOLENCE [None]
